FAERS Safety Report 7484118-5 (Version None)
Quarter: 2011Q2

REPORT INFORMATION
  Report Type: 
  Country: None (occurrence: None)
  Receive Date: 20110517
  Receipt Date: 20081001
  Transmission Date: 20111010
  Serious: Yes (Death, Hospitalization, Other)
  Sender: FDA-Public Use
  Company Number: US-BAYER-200836236NA

PATIENT
  Age: 60 Year
  Sex: Female
  Weight: 90.703 kg

DRUGS (15)
  1. TRASYLOL [Suspect]
     Indication: CORONARY ARTERY BYPASS
     Dosage: 50 ML /HR INFUSION
     Route: 042
     Dates: start: 20070503, end: 20070503
  2. TRASYLOL [Suspect]
     Indication: MITRAL VALVE REPLACEMENT
  3. PLASMA [Concomitant]
     Dosage: 4 UNITS
     Dates: start: 20070503
  4. LASIX [Concomitant]
     Dosage: 20 MG, QD
     Route: 048
     Dates: start: 20011011
  5. RED BLOOD CELLS [Concomitant]
     Dosage: 6 UNITS
     Dates: start: 20070503
  6. COREG [Concomitant]
     Dosage: 12.5MG / 2 X DAILY
     Route: 048
     Dates: start: 20061002
  7. HEPARIN [Concomitant]
     Dosage: 25000 UNITS
     Route: 042
  8. PROTAMINE SULFATE [Concomitant]
     Dosage: 50MG
     Route: 042
  9. TRASYLOL [Suspect]
     Indication: AORTIC VALVE REPLACEMENT
  10. PLATELETS [Concomitant]
     Dosage: 4 UNITS
     Dates: start: 20070503
  11. LANOXIN [Concomitant]
     Dosage: 0.125 / DAILY
     Route: 048
     Dates: start: 20061002
  12. COUMADIN [Concomitant]
     Dosage: 7.5 MG / DAILY
     Route: 048
  13. PRINIVIL [Concomitant]
     Dosage: 10 MG/ DAILY
     Route: 048
     Dates: start: 20030527
  14. LASIX [Concomitant]
     Dosage: 40 MG, QD
     Route: 048
     Dates: start: 20011011
  15. INSULIN [Concomitant]
     Dosage: 8 UNITS
     Route: 042

REACTIONS (12)
  - RENAL INJURY [None]
  - ANXIETY [None]
  - DEATH [None]
  - RENAL IMPAIRMENT [None]
  - EMOTIONAL DISTRESS [None]
  - PAIN [None]
  - RENAL FAILURE [None]
  - UNEVALUABLE EVENT [None]
  - FEAR [None]
  - STRESS [None]
  - ANHEDONIA [None]
  - INJURY [None]
